FAERS Safety Report 5378736-8 (Version None)
Quarter: 2007Q3

REPORT INFORMATION
  Report Type: 
  Country: None (occurrence: None)
  Receive Date: 20070705
  Receipt Date: 20070628
  Transmission Date: 20080115
  Serious: Yes (Hospitalization, Other)
  Sender: FDA-Public Use
  Company Number: B0476746A

PATIENT
  Age: 48 Year
  Sex: Male
  Weight: 76 kg

DRUGS (4)
  1. KIVEXA [Suspect]
     Dosage: 1UNIT PER DAY
     Route: 048
     Dates: start: 20051013
  2. KALETRA [Suspect]
     Dosage: 4UNIT PER DAY
     Route: 048
     Dates: start: 20031127
  3. LYRICA [Suspect]
     Dosage: 75MG TWICE PER DAY
     Route: 048
  4. HAVLANE [Concomitant]
     Dosage: 1UNIT PER DAY
     Route: 048

REACTIONS (4)
  - CYSTITIS ULCERATIVE [None]
  - HAEMATURIA [None]
  - INFLAMMATION [None]
  - URINARY BLADDER HAEMORRHAGE [None]
